FAERS Safety Report 14998906 (Version 1)
Quarter: 2018Q2

REPORT INFORMATION
  Report Type: Spontaneous
  Country: US (occurrence: US)
  Receive Date: 20180612
  Receipt Date: 20180612
  Transmission Date: 20180711
  Serious: No
  Sender: FDA-Public Use
  Company Number: US-CELGENEUS-USA-20180602199

PATIENT
  Sex: Female

DRUGS (2)
  1. OTEZLA [Suspect]
     Active Substance: APREMILAST
     Indication: PRODUCT USED FOR UNKNOWN INDICATION
     Dosage: TITRATION PACK (10, 20, 30 MG)
     Route: 048
     Dates: start: 20180509, end: 20180605
  2. OTEZLA [Suspect]
     Active Substance: APREMILAST
     Dosage: MAINTENANCE DOSE
     Route: 048
     Dates: start: 20180606

REACTIONS (4)
  - Weight decreased [Recovering/Resolving]
  - Nausea [Unknown]
  - Fatigue [Unknown]
  - Asthenia [Unknown]

NARRATIVE: CASE EVENT DATE: 2018
